FAERS Safety Report 10369280 (Version 1)
Quarter: 2014Q1

REPORT INFORMATION
  Report Type: Spontaneous
  Country: US (occurrence: None)
  Receive Date: 20140306
  Receipt Date: 20140306
  Transmission Date: 20141002
  Serious: Yes (Other)
  Sender: FDA-Public Use
  Company Number: 163-21880-13090814

PATIENT
  Age: 66 Year
  Sex: Male
  Weight: 90.3 kg

DRUGS (9)
  1. REVLIMID (LENALIDOMIDE) (25 MILLIGRAM, CAPSULES) [Suspect]
     Indication: PLASMA CELL MYELOMA
     Dosage: 11/2012 - TEMPORARILY INTERRUPTED
     Route: 048
     Dates: start: 201211
  2. DILTIAZEM (DILTIAZEM) [Concomitant]
  3. ASPIRIN (ACETYLASLICYLIC ACID) [Concomitant]
  4. VITAMIN D (ERGOCALCIFEROL) [Concomitant]
  5. FISH OIL (FISH OIL) [Concomitant]
  6. MULTIVITAMINS (MULTIVITAMINS) [Concomitant]
  7. RAMIPRIL (RAMIPRIL) [Concomitant]
  8. ALFUZOSIN HCL ER (ALFUZOSIN HYDROCHLORIDE) [Concomitant]
  9. DEXAMETHASONE (DEXAMETHASONE) [Concomitant]

REACTIONS (2)
  - Pancytopenia [None]
  - Adverse drug reaction [None]
